FAERS Safety Report 5118587-2 (Version None)
Quarter: 2006Q4

REPORT INFORMATION
  Report Type: 
  Country: None (occurrence: None)
  Receive Date: 20061002
  Receipt Date: 20060925
  Transmission Date: 20070319
  Serious: Yes (Other)
  Sender: FDA-Public Use
  Company Number: PHRM2006DZ02656

PATIENT
  Age: 43 Year
  Sex: Female

DRUGS (1)
  1. LESCOL [Suspect]
     Route: 048

REACTIONS (3)
  - AGRAPHIA [None]
  - AMNESIA [None]
  - DISORIENTATION [None]
